FAERS Safety Report 8307275-7 (Version None)
Quarter: 2012Q2

REPORT INFORMATION
  Report Type: 
  Country: None (occurrence: None)
  Receive Date: 20120424
  Receipt Date: 20120412
  Transmission Date: 20120825
  Serious: Yes (Hospitalization)
  Sender: FDA-Public Use
  Company Number: FR-JNJFOC-20120314233

PATIENT
  Sex: Male
  Weight: 36.4 kg

DRUGS (5)
  1. REMICADE [Suspect]
     Indication: CROHN'S DISEASE
     Route: 042
  2. REMICADE [Suspect]
     Route: 042
     Dates: start: 20111101
  3. AZATHIOPRINE [Concomitant]
     Indication: PRODUCT USED FOR UNKNOWN INDICATION
  4. REMICADE [Suspect]
     Route: 042
     Dates: start: 20110625
  5. REMICADE [Suspect]
     Route: 042
     Dates: start: 20120401

REACTIONS (1)
  - CROHN'S DISEASE [None]
